FAERS Safety Report 7530184-8 (Version None)
Quarter: 2011Q2

REPORT INFORMATION
  Report Type: 
  Country: None (occurrence: None)
  Receive Date: 20110607
  Receipt Date: 20110528
  Transmission Date: 20111010
  Serious: Yes (Hospitalization, Other)
  Sender: FDA-Public Use
  Company Number: PHHY2011KR48561

PATIENT
  Sex: Female

DRUGS (5)
  1. RISEDRONATE SODIUM [Concomitant]
     Dosage: UNK
     Route: 064
  2. HYDRALAZINE HCL [Suspect]
     Dosage: UNK
     Route: 064
  3. COLECALCIFEROL [Concomitant]
     Dosage: UNK
     Route: 064
  4. LABETALOL HCL [Suspect]
     Dosage: UNK
     Route: 064
  5. CALCIUM CARBONATE [Concomitant]
     Dosage: UNK
     Route: 064

REACTIONS (7)
  - SMALL FOR DATES BABY [None]
  - NEONATAL RESPIRATORY DISTRESS SYNDROME [None]
  - DRUG EXPOSURE DURING PREGNANCY [None]
  - MATERNAL DRUGS AFFECTING FOETUS [None]
  - FOETAL CARDIAC DISORDER [None]
  - PREMATURE BABY [None]
  - CAESAREAN SECTION [None]
